FAERS Safety Report 6598863-7 (Version None)
Quarter: 2010Q1

REPORT INFORMATION
  Report Type: 
  Country: None (occurrence: None)
  Receive Date: 20100224
  Receipt Date: 20100218
  Transmission Date: 20100710
  Serious: Yes (Hospitalization, Other)
  Sender: FDA-Public Use
  Company Number: US-ROXANE LABORATORIES, INC.-2010-RO-00173RO

PATIENT
  Age: 14 Year
  Sex: Male

DRUGS (4)
  1. RISPERIDONE [Suspect]
     Indication: PSYCHOTIC BEHAVIOUR
     Dosage: 1 MG
     Route: 048
  2. ANALGESICS [Concomitant]
     Indication: PRIAPISM
  3. PHENYLEPHRINE HCL [Concomitant]
     Indication: PRIAPISM
  4. ANTIBIOTICS [Concomitant]
     Indication: PRIAPISM

REACTIONS (4)
  - HAEMOGLOBIN S INCREASED [None]
  - LEUKOCYTOSIS [None]
  - PRIAPISM [None]
  - PYREXIA [None]
